FAERS Safety Report 14831416 (Version 1)
Quarter: 2018Q2

REPORT INFORMATION
  Report Type: Spontaneous
  Country: DK (occurrence: DK)
  Receive Date: 20180501
  Receipt Date: 20180501
  Transmission Date: 20180711
  Serious: Yes (Other)
  Sender: FDA-Public Use
  Company Number: DK-CONCORDIA PHARMACEUTICALS INC.-E2B_00011470

PATIENT
  Age: 77 Year
  Sex: Male

DRUGS (2)
  1. PREDNISOLONE. [Suspect]
     Active Substance: PREDNISOLONE
     Indication: HEPATITIS
     Dosage: STYRKE: 2, 5 MG (FRA 29JUN2016, STYRKEN ER UKENDT FRA BEH. START.)
     Route: 048
     Dates: start: 201512, end: 2017
  2. URSOCHOL [Concomitant]
     Active Substance: URSODIOL
     Indication: LIVER DISORDER
     Dosage: STYRKE: 250 MG
     Route: 048
     Dates: start: 20151008, end: 2017

REACTIONS (3)
  - Spinal compression fracture [Unknown]
  - Osteoporosis [Unknown]
  - Osteoporotic fracture [Unknown]

NARRATIVE: CASE EVENT DATE: 2017
